FAERS Safety Report 5285055-7 (Version None)
Quarter: 2007Q2

REPORT INFORMATION
  Report Type: 
  Country: None (occurrence: None)
  Receive Date: 20070403
  Receipt Date: 20070131
  Transmission Date: 20071010
  Serious: Yes (Hospitalization)
  Sender: FDA-Public Use
  Company Number: US-PFIZER INC-2007019496

PATIENT

DRUGS (1)
  1. XANAX [Suspect]
     Dosage: DAILY DOSE:8MG

REACTIONS (1)
  - ILL-DEFINED DISORDER [None]
